FAERS Safety Report 18747544 (Version 4)
Quarter: 2021Q1

REPORT INFORMATION
  Report Type: Spontaneous
  Country: CN (occurrence: CN)
  Receive Date: 20210115
  Receipt Date: 20210128
  Transmission Date: 20210419
  Serious: Yes (Death, Hospitalization, Other)
  Sender: FDA-Public Use
  Company Number: CN-ASTRAZENECA-2021A005084

PATIENT
  Age: 61 Year
  Sex: Female
  Weight: 45 kg

DRUGS (2)
  1. TAGRISSO [Suspect]
     Active Substance: OSIMERTINIB
     Indication: NON-SMALL CELL LUNG CANCER
     Route: 048
     Dates: start: 202011
  2. TAGRISSO [Suspect]
     Active Substance: OSIMERTINIB
     Indication: NON-SMALL CELL LUNG CANCER
     Dosage: ONE TABLET EVERY DAY FOR TWO OF THE THREE DAYS, AND STOP TAKING IT ON THE THIRD DAY IN JAN2021 OR...
     Route: 048

REACTIONS (17)
  - Vomiting [Unknown]
  - Death [Fatal]
  - Interstitial lung disease [Unknown]
  - Pulmonary fibrosis [Unknown]
  - Abdominal discomfort [Unknown]
  - Respiratory failure [Unknown]
  - Diarrhoea [Unknown]
  - Platelet count decreased [Unknown]
  - Drug resistance [Unknown]
  - Drug ineffective [Unknown]
  - Blood bilirubin increased [Unknown]
  - Nausea [Unknown]
  - Dyspnoea [Unknown]
  - General physical health deterioration [Unknown]
  - Neoplasm progression [Unknown]
  - Heart rate increased [Unknown]
  - Malignant neoplasm progression [Unknown]

NARRATIVE: CASE EVENT DATE: 20210109
